FAERS Safety Report 7501797-4 (Version None)
Quarter: 2011Q2

REPORT INFORMATION
  Report Type: 
  Country: None (occurrence: None)
  Receive Date: 20110525
  Receipt Date: 20100914
  Transmission Date: 20111010
  Serious: Yes (Other)
  Sender: FDA-Public Use
  Company Number: US-BAYER-201021545NA

PATIENT
  Age: 30 Year
  Sex: Female
  Weight: 86.168 kg

DRUGS (18)
  1. YAZ [Suspect]
     Indication: CONTRACEPTION
     Dosage: UNK UNK, UNK
     Route: 048
     Dates: start: 20030101, end: 20081101
  2. IBUPROFEN [Concomitant]
     Route: 048
  3. SUDAL [Concomitant]
     Dosage: UNK
     Route: 048
     Dates: start: 20080207
  4. ZYRTEC [Concomitant]
  5. AMOXICILLIN [Concomitant]
     Dosage: UNK
     Route: 048
     Dates: start: 20080214
  6. ZOLOFT [Concomitant]
  7. YASMIN [Suspect]
     Indication: CONTRACEPTION
     Dosage: UNK UNK, QD
     Dates: start: 20030101, end: 20081101
  8. OXYCODONE HCL AND ACETAMINOPHEN [Concomitant]
  9. COTRIM [Concomitant]
     Dosage: UNK
     Route: 048
     Dates: start: 20071201
  10. LEVBID [Concomitant]
     Dosage: UNK UNK, PRN
  11. ALLEGRA-D [FEXOFENADINE HYDROCHLORIDE,PSEUDOEPHEDRINE HYDROCHLORIDE] [Concomitant]
  12. PROMETHAZINE [Concomitant]
     Route: 048
  13. PROZAC [Concomitant]
     Route: 048
  14. PREDNISONE [Concomitant]
     Dosage: UNK
     Route: 048
     Dates: start: 20071201
  15. EFFEXOR XR [Concomitant]
     Dosage: UNK
     Route: 048
     Dates: start: 20071107
  16. METHYLPREDNISOLONE ACETATE [Concomitant]
     Dosage: UNK
     Route: 048
     Dates: start: 20071119
  17. XOPENEX [Concomitant]
     Dosage: UNK
     Dates: start: 20071201
  18. TAMIFLU [Concomitant]
     Dosage: UNK
     Route: 048
     Dates: start: 20080207

REACTIONS (5)
  - CHOLECYSTITIS CHRONIC [None]
  - GALLBLADDER DISORDER [None]
  - CHOLELITHIASIS [None]
  - CHOLESTEROSIS [None]
  - PAIN [None]
